FAERS Safety Report 5461854-3 (Version None)
Quarter: 2007Q3

REPORT INFORMATION
  Report Type: 
  Country: None (occurrence: None)
  Receive Date: 20070920
  Receipt Date: 20070102
  Transmission Date: 20080115
  Serious: No
  Sender: FDA-Public Use
  Company Number: A0632814A

PATIENT
  Age: 94 Year
  Sex: Female

DRUGS (7)
  1. ABREVA [Suspect]
  2. AMPHOCIL [Concomitant]
  3. FOLIC [Concomitant]
  4. HEXESTROL [Concomitant]
  5. METHIMAZOLE [Concomitant]
  6. CALTRATE-600 [Concomitant]
  7. SODIUM BICARBONATE [Concomitant]

REACTIONS (3)
  - DRUG INEFFECTIVE [None]
  - LIP SWELLING [None]
  - ORAL HERPES [None]
